FAERS Safety Report 13498993 (Version 1)
Quarter: 2017Q2

REPORT INFORMATION
  Report Type: Spontaneous
  Country: US (occurrence: US)
  Receive Date: 20170501
  Receipt Date: 20170501
  Transmission Date: 20170830
  Serious: Yes (Hospitalization, Other)
  Sender: FDA-Public Use
  Company Number: US-ELI_LILLY_AND_COMPANY-US201704011231

PATIENT
  Age: 77 Year
  Sex: Male
  Weight: 70 kg

DRUGS (2)
  1. LANTUS [Concomitant]
     Active Substance: INSULIN GLARGINE
     Indication: TYPE 2 DIABETES MELLITUS
     Dosage: 40 IU, EACH MORNING
  2. HUMALOG [Suspect]
     Active Substance: INSULIN LISPRO
     Indication: TYPE 2 DIABETES MELLITUS
     Dosage: 12 IU, PRN (4 OR 6 TIMES A DAY)
     Route: 058

REACTIONS (9)
  - Blood glucose abnormal [Recovered/Resolved]
  - Bronchitis [Unknown]
  - Drug hypersensitivity [Unknown]
  - Glycosylated haemoglobin increased [Not Recovered/Not Resolved]
  - Hypoglycaemic unconsciousness [Unknown]
  - Sinusitis [Unknown]
  - Toothache [Unknown]
  - Diabetic ketoacidosis [Unknown]
  - Blood glucose increased [Unknown]

NARRATIVE: CASE EVENT DATE: 201704
